FAERS Safety Report 14543614 (Version 5)
Quarter: 2018Q2

REPORT INFORMATION
  Report Type: Report from Study
  Country: US (occurrence: US)
  Receive Date: 20180216
  Receipt Date: 20180516
  Transmission Date: 20180711
  Serious: Yes (Hospitalization, Other)
  Sender: FDA-Public Use
  Company Number: PHEH2018US005372

PATIENT
  Sex: Male

DRUGS (1)
  1. COSENTYX [Suspect]
     Active Substance: SECUKINUMAB
     Indication: PRODUCT USED FOR UNKNOWN INDICATION
     Dosage: 150 MG, QMO (INJECT 2 SYRINGES MONTHLY)
     Route: 058

REACTIONS (10)
  - Injection site haemorrhage [Unknown]
  - Jaw fracture [Unknown]
  - Rash [Unknown]
  - Hypotension [Unknown]
  - Device malfunction [Unknown]
  - Skin disorder [Unknown]
  - Hypertension [Unknown]
  - Skin hypopigmentation [Unknown]
  - Pain [Unknown]
  - Device issue [Unknown]
